FAERS Safety Report 21259586 (Version 3)
Quarter: 2022Q3

REPORT INFORMATION
  Report Type: Report from Study
  Country: CN (occurrence: None)
  Receive Date: 20220826
  Receipt Date: 20220829
  Transmission Date: 20221026
  Serious: Yes (Death)
  Sender: FDA-Public Use
  Company Number: CN-Eisai Medical Research-EC-2022-122105

PATIENT
  Age: 69 Year
  Sex: Male
  Weight: 57.5 kg

DRUGS (15)
  1. LENVATINIB [Suspect]
     Active Substance: LENVATINIB
     Indication: Oesophageal cancer metastatic
     Dosage: STARTING DOSE AT 8 MG, FLUCTUATED DOSE
     Route: 048
     Dates: start: 20220602, end: 20220815
  2. PEMBROLIZUMAB [Suspect]
     Active Substance: PEMBROLIZUMAB
     Indication: Oesophageal cancer metastatic
     Route: 041
     Dates: start: 20220602, end: 20220714
  3. CISPLATIN [Suspect]
     Active Substance: CISPLATIN
     Indication: Oesophageal cancer metastatic
     Dosage: DOSE UNKNOWN
     Route: 041
     Dates: start: 20220602, end: 20220804
  4. FLUOROURACIL [Suspect]
     Active Substance: FLUOROURACIL
     Indication: Oesophageal cancer metastatic
     Dosage: DOSE UNKNOWN
     Route: 041
     Dates: start: 20220602, end: 20220809
  5. AMLODIPINE BESYLATE [Concomitant]
     Active Substance: AMLODIPINE BESYLATE
     Dates: start: 201006
  6. OMEPRAZOLE [Concomitant]
     Active Substance: OMEPRAZOLE
     Dates: start: 20200525
  7. ACETAMINOPHEN\OXYCODONE HYDROCHLORIDE [Concomitant]
     Active Substance: ACETAMINOPHEN\OXYCODONE HYDROCHLORIDE
     Dates: start: 20220602
  8. LACTULOSE [Concomitant]
     Active Substance: LACTULOSE
     Dates: start: 20220610
  9. POTASSIUM CHLORIDE [Concomitant]
     Active Substance: POTASSIUM CHLORIDE
     Route: 042
     Dates: start: 20220804, end: 20220806
  10. ILAPRAZOLE [Concomitant]
     Active Substance: ILAPRAZOLE
     Route: 042
     Dates: start: 20220804, end: 20220806
  11. APREPITANT [Concomitant]
     Active Substance: APREPITANT
     Dates: start: 20220804, end: 20220806
  12. TORSEMIDE [Concomitant]
     Active Substance: TORSEMIDE
     Dosage: INTRAUTERINE DEVICE
     Dates: start: 20220804, end: 20220806
  13. METOCLOPRAMIDE HYDROCHLORIDE [Concomitant]
     Active Substance: METOCLOPRAMIDE HYDROCHLORIDE
     Route: 030
     Dates: start: 20220805, end: 20220805
  14. TROPISETRON HYDROCHLORIDE [Concomitant]
     Active Substance: TROPISETRON HYDROCHLORIDE
     Route: 042
     Dates: start: 20220805, end: 20220805
  15. FILGRASTIM [Concomitant]
     Active Substance: FILGRASTIM
     Route: 058
     Dates: start: 20220815

REACTIONS (1)
  - Craniocerebral injury [Fatal]

NARRATIVE: CASE EVENT DATE: 20220819
